FAERS Safety Report 10169297 (Version 7)
Quarter: 2018Q1

REPORT INFORMATION
  Report Type: Spontaneous
  Country: US (occurrence: US)
  Receive Date: 20140513
  Receipt Date: 20180118
  Transmission Date: 20180508
  Serious: Yes (Hospitalization, Other)
  Sender: FDA-Public Use
  Company Number: US-009507513-1405USA002445

PATIENT
  Sex: Female
  Weight: 79.37 kg

DRUGS (11)
  1. CHOLECALCIFEROL [Concomitant]
     Active Substance: CHOLECALCIFEROL
     Indication: PROPHYLAXIS
     Dosage: 1000 IU, UNK
     Route: 065
     Dates: start: 1996
  2. FOSAMAX [Suspect]
     Active Substance: ALENDRONATE SODIUM
     Indication: OSTEOPOROSIS
     Dosage: 10 MG, QD
     Route: 048
     Dates: start: 1996, end: 200708
  3. PROTONIX [Concomitant]
     Active Substance: PANTOPRAZOLE SODIUM
     Indication: PRODUCT USED FOR UNKNOWN INDICATION
     Dosage: UNK, UNKNOWN
     Route: 065
     Dates: end: 2004
  4. PYRIDOXINE [Concomitant]
     Active Substance: PYRIDOXINE
     Indication: PROPHYLAXIS
     Dosage: 210 MG, QD
     Route: 065
     Dates: start: 1996
  5. FOSAMAX [Suspect]
     Active Substance: ALENDRONATE SODIUM
     Dosage: 70 MG, QW
     Route: 048
     Dates: start: 1996, end: 200708
  6. BONIVA [Suspect]
     Active Substance: IBANDRONATE SODIUM
     Indication: OSTEOPOROSIS
     Dosage: 150 MG, QM
     Route: 065
     Dates: start: 200708, end: 2012
  7. CALCIUM CITRATE [Concomitant]
     Active Substance: CALCIUM CITRATE
     Indication: PROPHYLAXIS
     Dosage: 1000 MG, QD
     Route: 065
     Dates: start: 1996
  8. CELEBREX [Concomitant]
     Active Substance: CELECOXIB
     Indication: PRODUCT USED FOR UNKNOWN INDICATION
     Dosage: UNK, UNKNOWN
     Route: 065
     Dates: start: 2000
  9. MAGNESIUM (UNSPECIFIED) [Concomitant]
     Active Substance: MAGNESIUM
     Indication: PROPHYLAXIS
     Dosage: 80 MG, QD
     Route: 065
     Dates: start: 1996
  10. VITAMIN D [Concomitant]
     Active Substance: CHOLECALCIFEROL
     Indication: PROPHYLAXIS
     Dosage: 50000 IU, QW
     Route: 065
     Dates: start: 1996
  11. OMEPRAZOLE. [Concomitant]
     Active Substance: OMEPRAZOLE
     Indication: GASTROOESOPHAGEAL REFLUX DISEASE
     Dosage: UNK, UNKNOWN
     Route: 065
     Dates: start: 1990

REACTIONS (37)
  - Femur fracture [Recovering/Resolving]
  - Femoral neck fracture [Recovering/Resolving]
  - Device failure [Unknown]
  - Femur fracture [Recovering/Resolving]
  - Stress fracture [Unknown]
  - Spinal osteoarthritis [Unknown]
  - Diarrhoea [Recovered/Resolved]
  - Panic attack [Unknown]
  - Medical device removal [Unknown]
  - Fracture nonunion [Unknown]
  - Osteoporosis [Unknown]
  - Insomnia [Unknown]
  - Depression [Unknown]
  - Anxiety [Unknown]
  - Femur fracture [Unknown]
  - Hypotension [Recovered/Resolved]
  - Osteoporosis [Unknown]
  - Foot fracture [Unknown]
  - Osteoarthritis [Unknown]
  - Post procedural haemorrhage [Recovering/Resolving]
  - Pyrexia [Recovered/Resolved]
  - Cardiac murmur [Recovered/Resolved]
  - Staphylococcal infection [Unknown]
  - Fall [Unknown]
  - Arthropathy [Unknown]
  - Fibromyalgia [Unknown]
  - Dysuria [Unknown]
  - Drug hypersensitivity [Unknown]
  - Impaired healing [Unknown]
  - Rash [Unknown]
  - Pain in extremity [Unknown]
  - Arthropathy [Unknown]
  - Vomiting [Unknown]
  - Hyperlipidaemia [Unknown]
  - Vitamin D deficiency [Unknown]
  - Gastrointestinal disorder [Unknown]
  - Kyphosis [Unknown]

NARRATIVE: CASE EVENT DATE: 2000
